FAERS Safety Report 25908260 (Version 1)
Quarter: 2025Q4

REPORT INFORMATION
  Report Type: Spontaneous
  Country: EU (occurrence: EU)
  Receive Date: 20251010
  Receipt Date: 20251010
  Transmission Date: 20260119
  Serious: Yes (Life-Threatening, Hospitalization, Other)
  Sender: OTSUKA
  Company Number: EU-Accord-480005

PATIENT
  Age: 51 Year
  Sex: Female

DRUGS (19)
  1. ARIPIPRAZOLE [Interacting]
     Active Substance: ARIPIPRAZOLE
     Indication: Depression
     Dosage: 10 MG, QD ONCE EVERY DAY (FOR THE PREVIOUS 6 MONTHS)
     Route: 065
  2. ARIPIPRAZOLE [Interacting]
     Active Substance: ARIPIPRAZOLE
     Indication: Psychotic disorder
  3. ARIPIPRAZOLE [Interacting]
     Active Substance: ARIPIPRAZOLE
     Indication: Psychiatric symptom
  4. ARIPIPRAZOLE [Interacting]
     Active Substance: ARIPIPRAZOLE
     Indication: Antipsychotic therapy
  5. LACOSAMIDE [Interacting]
     Active Substance: LACOSAMIDE
     Indication: Partial seizures with secondary generalisation
     Dosage: 100 MG, QD (1X PER DAY, IN THE EVENING)
     Route: 065
  6. LACOSAMIDE [Interacting]
     Active Substance: LACOSAMIDE
     Indication: Seizure
     Dosage: 100 MG, BID
     Dates: end: 202407
  7. LACOSAMIDE [Interacting]
     Active Substance: LACOSAMIDE
     Dosage: 50 MG, BID (IN THE EDCASE 2)
     Route: 065
  8. LACOSAMIDE [Interacting]
     Active Substance: LACOSAMIDE
     Dosage: 200 MG, BID (2X PER DAY) (400 MG, QD)
     Dates: end: 202407
  9. LACOSAMIDE [Interacting]
     Active Substance: LACOSAMIDE
     Dosage: 100 MG
     Route: 065
  10. LACOSAMIDE [Interacting]
     Active Substance: LACOSAMIDE
     Dosage: 50 MG, DAILY
     Dates: start: 20240728, end: 20240729
  11. FLUVOXAMINE [Interacting]
     Active Substance: FLUVOXAMINE
     Indication: Depression
     Dosage: 100 MG, QD (ONCE IN A DAY) (FOR THE PREVIOUS 6 MONTHS)
     Route: 065
  12. FLUVOXAMINE [Interacting]
     Active Substance: FLUVOXAMINE
     Indication: Psychotic disorder
  13. FLUVOXAMINE [Interacting]
     Active Substance: FLUVOXAMINE
     Indication: Psychiatric symptom
  14. FLUVOXAMINE [Interacting]
     Active Substance: FLUVOXAMINE
     Indication: Antipsychotic therapy
  15. LACOSAMIDE [Interacting]
     Active Substance: LACOSAMIDE
     Indication: Partial seizures with secondary generalisation
     Dosage: 200 MG, QD
     Dates: end: 202407
  16. DIAZEPAM [Concomitant]
     Active Substance: DIAZEPAM
     Indication: Partial seizures with secondary generalisation
     Dosage: UNK (INFUSION)
     Route: 065
  17. DIAZEPAM [Concomitant]
     Active Substance: DIAZEPAM
     Indication: Generalised tonic-clonic seizure
  18. DIAZEPAM [Concomitant]
     Active Substance: DIAZEPAM
     Indication: Psychotic disorder
  19. DIAZEPAM [Concomitant]
     Active Substance: DIAZEPAM
     Indication: Seizure

REACTIONS (5)
  - Rhabdomyolysis [Recovered/Resolved]
  - Blood creatine phosphokinase increased [Recovered/Resolved]
  - Transaminases increased [Recovered/Resolved]
  - Myalgia [Recovered/Resolved]
  - Drug interaction [Recovered/Resolved]
